FAERS Safety Report 7631426-0 (Version None)
Quarter: 2011Q3

REPORT INFORMATION
  Report Type: 
  Country: None (occurrence: None)
  Receive Date: 20110725
  Receipt Date: 20110712
  Transmission Date: 20111222
  Serious: Yes (Life-Threatening, Other)
  Sender: FDA-Public Use
  Company Number: FR-ELI_LILLY_AND_COMPANY-FR201107002922

PATIENT
  Sex: Female

DRUGS (11)
  1. TERCIAN [Concomitant]
     Indication: POTENTIATING DRUG INTERACTION
     Dosage: 35 DF, UNK
     Dates: start: 20110408, end: 20110427
  2. IMOVANE [Concomitant]
  3. PROPRANOLOL [Concomitant]
  4. FORLAX [Concomitant]
  5. ZYPREXA [Suspect]
     Indication: ABNORMAL BEHAVIOUR
     Dosage: 5 MG, QD
     Route: 048
     Dates: start: 20110408, end: 20110515
  6. NOCTAMIDE [Concomitant]
  7. EFFEXOR [Concomitant]
     Dosage: 75 MG, UNK
     Dates: start: 20110417
  8. ALPRAZOLAM [Concomitant]
  9. VENLAFAXINE [Concomitant]
     Dosage: UNK
     Dates: end: 20110516
  10. ASPIRIN [Concomitant]
  11. EFFEXOR [Concomitant]
     Dosage: 37.5 MG, UNK

REACTIONS (11)
  - HYPERTHERMIA [None]
  - PNEUMONIA ASPIRATION [None]
  - NEUROLEPTIC MALIGNANT SYNDROME [None]
  - HYPOVENTILATION [None]
  - PNEUMOTHORAX TRAUMATIC [None]
  - OXYGEN SATURATION DECREASED [None]
  - PANCREATITIS [None]
  - CYANOSIS [None]
  - ALANINE AMINOTRANSFERASE INCREASED [None]
  - ASPARTATE AMINOTRANSFERASE INCREASED [None]
  - OFF LABEL USE [None]
